FAERS Safety Report 6295244-0 (Version None)
Quarter: 2009Q3

REPORT INFORMATION
  Report Type: 
  Country: None (occurrence: None)
  Receive Date: 20090803
  Receipt Date: 20090723
  Transmission Date: 20100115
  Serious: Yes (Hospitalization, Other)
  Sender: FDA-Public Use
  Company Number: BR-AVENTIS-200917563GDDC

PATIENT
  Age: 63 Year
  Sex: Male
  Weight: 77 kg

DRUGS (10)
  1. LANTUS [Suspect]
     Indication: TYPE 2 DIABETES MELLITUS
     Route: 058
  2. OPTIPEN (INSULIN PUMP) [Suspect]
  3. CRESTOR [Concomitant]
     Dosage: DOSE QUANTITY: 1
     Route: 048
  4. AAS [Concomitant]
     Dosage: DOSE: 1 TABLET AFTER LUNCH
     Route: 048
  5. ZYLORIC [Concomitant]
     Dosage: DOSE: 1 TABLET AFTER LUNCH
     Route: 048
  6. ATENOLOL [Concomitant]
     Dosage: DOSE: 1 TABLET IN AM + 1 TABLET AFTER DINNER
     Route: 048
  7. OLMETEC [Concomitant]
     Dosage: DOSE: 1 TABLET AFTER BREAKFAST
     Route: 048
  8. KETOSTERIL                         /00512401/ [Concomitant]
     Indication: RENAL DISORDER
     Dosage: DOSE QUANTITY: 1
     Route: 048
  9. LOSARTAN POTASSIUM [Concomitant]
     Indication: RENAL DISORDER
     Dosage: DOSE QUANTITY: 1
     Route: 048
  10. ROCALTROL [Concomitant]
     Dosage: DOSE QUANTITY: 1
     Route: 048

REACTIONS (8)
  - AZOTAEMIA [None]
  - BLOOD POTASSIUM INCREASED [None]
  - CONDITION AGGRAVATED [None]
  - HEPATIC NEOPLASM [None]
  - HYPOGLYCAEMIA [None]
  - JAUNDICE [None]
  - RENAL FAILURE [None]
  - VOMITING [None]
